FAERS Safety Report 22068854 (Version 1)
Quarter: 2023Q1

REPORT INFORMATION
  Report Type: Spontaneous
  Country: US (occurrence: US)
  Receive Date: 20230307
  Receipt Date: 20230307
  Transmission Date: 20230417
  Serious: No
  Sender: FDA-Public Use
  Company Number: US-DSJP-DSU-2023-108197

PATIENT
  Sex: Female

DRUGS (1)
  1. ENHERTU [Suspect]
     Active Substance: FAM-TRASTUZUMAB DERUXTECAN-NXKI
     Indication: HER2 positive breast cancer
     Dosage: UNK
     Route: 065
     Dates: start: 202110

REACTIONS (6)
  - Fatigue [Not Recovered/Not Resolved]
  - Depression [Unknown]
  - Gastrointestinal disorder [Unknown]
  - Constipation [Unknown]
  - Epistaxis [Unknown]
  - Dehydration [Unknown]
